FAERS Safety Report 15490260 (Version 1)
Quarter: 2018Q4

REPORT INFORMATION
  Report Type: Spontaneous
  Country: FR (occurrence: FR)
  Receive Date: 20181011
  Receipt Date: 20181011
  Transmission Date: 20190205
  Serious: Yes (Death, Other)
  Sender: FDA-Public Use
  Company Number: FR-PURDUE-GBR-2016-0033562

PATIENT
  Age: 40 Year
  Sex: Male

DRUGS (7)
  1. ALCOHOL. [Interacting]
     Active Substance: ALCOHOL
     Dosage: UNK
     Route: 065
  2. NON-PMN BUPRENORPHINE [Interacting]
     Active Substance: BUPRENORPHINE
     Dosage: UNK
     Route: 065
  3. 9-TETRAHYDROCANNABINOL [Suspect]
     Active Substance: DRONABINOL
     Indication: PRODUCT USED FOR UNKNOWN INDICATION
     Route: 065
  4. NON-PMN BUPRENORPHINE [Suspect]
     Active Substance: BUPRENORPHINE
     Indication: DRUG WITHDRAWAL MAINTENANCE THERAPY
     Dosage: 4 MG, UNK
     Route: 060
  5. OXAZEPAM. [Interacting]
     Active Substance: OXAZEPAM
     Indication: PRODUCT USED FOR UNKNOWN INDICATION
     Route: 065
  6. CLONAZEPAM. [Suspect]
     Active Substance: CLONAZEPAM
     Indication: PRODUCT USED FOR UNKNOWN INDICATION
     Dosage: UNK
     Route: 065
  7. ALCOHOL. [Interacting]
     Active Substance: ALCOHOL
     Indication: PRODUCT USED FOR UNKNOWN INDICATION
     Route: 065

REACTIONS (8)
  - Toxicity to various agents [Fatal]
  - Pulmonary oedema [Fatal]
  - Asphyxia [Fatal]
  - Fatigue [Fatal]
  - Respiratory failure [Fatal]
  - Respiratory depression [Fatal]
  - Drug interaction [Fatal]
  - Brain oedema [Fatal]
